FAERS Safety Report 4514872-3 (Version None)
Quarter: 2004Q4

REPORT INFORMATION
  Report Type: 
  Country: None (occurrence: None)
  Receive Date: 20041201
  Receipt Date: 20041129
  Transmission Date: 20050328
  Serious: Yes (Death)
  Sender: FDA-Public Use
  Company Number: US-JNJFOC-20041103698

PATIENT
  Sex: Male
  Weight: 99.79 kg

DRUGS (4)
  1. DURAGESIC [Suspect]
     Route: 062
  2. HYDROMORPHONE [Concomitant]
     Indication: PAIN
     Dosage: SIX 2 MG TABLETS IN LESS THAN 24 HOURS
     Route: 049
  3. CANNABIS [Concomitant]
  4. ALCOHOL [Concomitant]

REACTIONS (8)
  - ACCIDENTAL DEATH [None]
  - ALCOHOL USE [None]
  - COMA [None]
  - DRUG DEPENDENCE [None]
  - DRUG TOXICITY [None]
  - FEELING ABNORMAL [None]
  - PULMONARY OEDEMA [None]
  - VOMITING [None]
